FAERS Safety Report 14689388 (Version 1)
Quarter: 2018Q1

REPORT INFORMATION
  Report Type: Spontaneous
  Country: US (occurrence: US)
  Receive Date: 20180328
  Receipt Date: 20180328
  Transmission Date: 20180509
  Serious: Yes (Other)
  Sender: FDA-Public Use
  Company Number: US-PFIZER INC-2018126863

PATIENT
  Age: 58 Year
  Sex: Male

DRUGS (1)
  1. METHOTREXATE SODIUM. [Suspect]
     Active Substance: METHOTREXATE SODIUM
     Dosage: 0.5 ML, WEEKLY
     Route: 058

REACTIONS (3)
  - Pneumonia [Recovered/Resolved]
  - Palindromic rheumatism [Unknown]
  - Bronchitis [Unknown]

NARRATIVE: CASE EVENT DATE: 201512
